FAERS Safety Report 13742279 (Version 1)
Quarter: 2017Q3

REPORT INFORMATION
  Report Type: Report from Study
  Country: IT (occurrence: IT)
  Receive Date: 20170711
  Receipt Date: 20170711
  Transmission Date: 20171127
  Serious: Yes (Other)
  Sender: FDA-Public Use
  Company Number: IT-CELGENEUS-ITA-20170608730

PATIENT
  Sex: Female

DRUGS (2)
  1. CAPECITABINE. [Suspect]
     Active Substance: CAPECITABINE
     Indication: BREAST CANCER METASTATIC
     Dosage: 1650 MILLIGRAM/SQ. METER
     Route: 065
  2. ABRAXANE [Suspect]
     Active Substance: PACLITAXEL
     Indication: BREAST CANCER METASTATIC
     Dosage: 150 MILLIGRAM/SQ. METER
     Route: 041

REACTIONS (46)
  - Apraxia [Unknown]
  - Cystitis [Unknown]
  - Anaemia [Unknown]
  - Pyrexia [Unknown]
  - Dysgeusia [Unknown]
  - Influenza [Unknown]
  - Paronychia [Unknown]
  - Pharyngitis [Unknown]
  - Neutropenia [Unknown]
  - Dyspnoea [Unknown]
  - Nausea [Unknown]
  - Abdominal pain [Unknown]
  - Oropharyngeal pain [Unknown]
  - Alopecia [Unknown]
  - Palmar-plantar erythrodysaesthesia syndrome [Unknown]
  - Leukopenia [Unknown]
  - Thrombocytopenia [Unknown]
  - Tachycardia [Unknown]
  - Decreased appetite [Unknown]
  - Vomiting [Unknown]
  - Mucosal inflammation [Unknown]
  - Skin toxicity [Unknown]
  - Pain [Unknown]
  - Hyperbilirubinaemia [Unknown]
  - Headache [Unknown]
  - Cough [Unknown]
  - Rhinorrhoea [Unknown]
  - Abdominal pain upper [Unknown]
  - Epistaxis [Unknown]
  - Pruritus [Unknown]
  - Oedema [Unknown]
  - Syncope [Unknown]
  - Facial paralysis [Unknown]
  - Febrile neutropenia [Unknown]
  - Asthenia [Unknown]
  - Neuropathy peripheral [Unknown]
  - Dyspepsia [Unknown]
  - Rhinitis [Unknown]
  - Haemorrhoids [Unknown]
  - Conjunctivitis [Unknown]
  - Intestinal perforation [Unknown]
  - Cheilitis [Unknown]
  - Constipation [Unknown]
  - Pleuritic pain [Unknown]
  - Hallucination [Unknown]
  - Atrial fibrillation [Unknown]
